FAERS Safety Report 9303236 (Version 1)
Quarter: 2013Q2

REPORT INFORMATION
  Report Type: Spontaneous
  Country: CN (occurrence: CN)
  Receive Date: 20130522
  Receipt Date: 20130522
  Transmission Date: 20140414
  Serious: Yes (Hospitalization)
  Sender: FDA-Public Use
  Company Number: CN-ABBOTT-13X-035-1092439-00

PATIENT
  Age: 65 Year
  Sex: Male

DRUGS (2)
  1. DEPAKINE CHRONO [Suspect]
     Indication: EPILEPSY
     Dosage: EXTENDED RELEASE, 500 MILLIGRAMS (S); DAILY
     Route: 048
     Dates: start: 20120509, end: 20120615
  2. HERBESSER [Suspect]
     Indication: PRODUCT USED FOR UNKNOWN INDICATION
     Route: 065
     Dates: end: 201206

REACTIONS (9)
  - Pain of skin [Unknown]
  - Epidermolysis bullosa [Recovering/Resolving]
  - Rash generalised [Recovered/Resolved]
  - Blister [Unknown]
  - Generalised erythema [Unknown]
  - Skin erosion [Unknown]
  - Skin exfoliation [Unknown]
  - Skin necrosis [Unknown]
  - Pruritus [Unknown]
